FAERS Safety Report 4535218-0 (Version None)
Quarter: 2004Q4

REPORT INFORMATION
  Report Type: 
  Country: None (occurrence: None)
  Receive Date: 20041214
  Receipt Date: 20041008
  Transmission Date: 20050328
  Serious: No
  Sender: FDA-Public Use
  Company Number: 2004238220US

PATIENT
  Age: 63 Year
  Sex: Female
  Weight: 68.5 kg

DRUGS (3)
  1. BEXTRA [Suspect]
     Indication: OSTEOARTHRITIS
     Dosage: 10 MG, QD, ORAL
     Route: 048
     Dates: start: 20040930, end: 20041008
  2. SYNTHROID [Concomitant]
  3. ASPIRIN [Concomitant]

REACTIONS (3)
  - DYSURIA [None]
  - FEELING ABNORMAL [None]
  - VISION BLURRED [None]
